FAERS Safety Report 25115953 (Version 7)
Quarter: 2025Q4

REPORT INFORMATION
  Report Type: Report from Study
  Country: US (occurrence: US)
  Receive Date: 20250325
  Receipt Date: 20251231
  Transmission Date: 20260118
  Serious: Yes (Hospitalization)
  Sender: ABBVIE
  Company Number: US-ABBVIE-6188482

PATIENT
  Age: 55 Year
  Sex: Female

DRUGS (2)
  1. RINVOQ [Suspect]
     Active Substance: UPADACITINIB
     Indication: Psoriatic arthropathy
     Route: 048
     Dates: start: 20220616, end: 20220616
  2. RINVOQ [Suspect]
     Active Substance: UPADACITINIB
     Indication: Psoriatic arthropathy
     Route: 048
     Dates: start: 20220616, end: 20251222

REACTIONS (12)
  - COVID-19 [Unknown]
  - Sinusitis [Unknown]
  - Lactic acidosis [Unknown]
  - Sepsis [Recovered/Resolved]
  - Laryngeal injury [Unknown]
  - Seasonal allergy [Unknown]
  - Enzyme level increased [Unknown]
  - Renal function test abnormal [Unknown]
  - Ear infection [Unknown]
  - Illness [Unknown]
  - Speech disorder [Unknown]
  - Hepatic enzyme increased [Unknown]

NARRATIVE: CASE EVENT DATE: 20250101
